FAERS Safety Report 6267637-9 (Version None)
Quarter: 2009Q3

REPORT INFORMATION
  Report Type: 
  Country: None (occurrence: None)
  Receive Date: 20090714
  Receipt Date: 20090630
  Transmission Date: 20100115
  Serious: Yes (Death)
  Sender: FDA-Public Use
  Company Number: GB-ELI_LILLY_AND_COMPANY-GB200907001186

PATIENT
  Age: 32 Year
  Sex: Female

DRUGS (6)
  1. FLUOXETINE HCL [Suspect]
  2. CHLORDIAZEPOXIDE [Concomitant]
  3. ETHANOL [Concomitant]
  4. MEBEVERINE [Concomitant]
  5. PARACETAMOL [Concomitant]
  6. VALPROIC ACID [Concomitant]

REACTIONS (1)
  - DEATH [None]
